FAERS Safety Report 7174391-5 (Version None)
Quarter: 2010Q4

REPORT INFORMATION
  Report Type: 
  Country: None (occurrence: None)
  Receive Date: 20101219
  Receipt Date: 20100326
  Transmission Date: 20110411
  Serious: No
  Sender: FDA-Public Use
  Company Number: US-AMGEN-KDL402540

PATIENT

DRUGS (3)
  1. ENBREL [Suspect]
     Indication: PSORIATIC ARTHROPATHY
     Dosage: 50 MG, QWK
     Route: 058
     Dates: start: 20091215
  2. METHOTREXATE [Concomitant]
     Dosage: 2.5 MG, QD
     Route: 048
  3. UNSPECIFIED ANALGESIC [Concomitant]

REACTIONS (1)
  - DRUG INEFFECTIVE [None]
